FAERS Safety Report 5032103-5 (Version None)
Quarter: 2006Q2

REPORT INFORMATION
  Report Type: 
  Country: None (occurrence: None)
  Receive Date: 20060619
  Receipt Date: 20060609
  Transmission Date: 20061013
  Serious: Yes (Hospitalization)
  Sender: FDA-Public Use
  Company Number: 2006BI008464

PATIENT
  Age: 41 Year
  Sex: Male

DRUGS (2)
  1. AVONEX [Suspect]
     Indication: MULTIPLE SCLEROSIS
     Dosage: 30 UG QW IM
     Route: 030
     Dates: start: 20040101
  2. PREDNISONE [Concomitant]

REACTIONS (4)
  - ANGIOPATHY [None]
  - MULTIPLE SCLEROSIS RELAPSE [None]
  - NECROSIS [None]
  - SURGERY [None]
